FAERS Safety Report 9140476 (Version 1)
Quarter: 2013Q1

REPORT INFORMATION
  Report Type: Spontaneous
  Country: JP (occurrence: JP)
  Receive Date: 20130305
  Receipt Date: 20130305
  Transmission Date: 20140127
  Serious: Yes (Other)
  Sender: FDA-Public Use
  Company Number: JP-B.I. PHARMACEUTICALS,INC./RIDGEFIELD-2013-BI-06004YA

PATIENT
  Sex: Male

DRUGS (3)
  1. HARNAL [Suspect]
     Dosage: 0.4 MG
     Route: 048
  2. EBRANTIL [Suspect]
     Dosage: 60 MG
     Route: 048
  3. URIEF [Suspect]
     Dosage: 8 MG
     Route: 048

REACTIONS (2)
  - Eye operation [Unknown]
  - Prescribed overdose [Unknown]
